FAERS Safety Report 9614072 (Version 2)
Quarter: 2013Q4

REPORT INFORMATION
  Report Type: Spontaneous
  Country: AR (occurrence: AR)
  Receive Date: 20131011
  Receipt Date: 20131021
  Transmission Date: 20140711
  Serious: Yes (Other)
  Sender: FDA-Public Use
  Company Number: AR-AMGEN-ARGSP2013071683

PATIENT
  Age: 61 Year
  Sex: Female

DRUGS (4)
  1. ENBREL [Suspect]
     Indication: RHEUMATOID ARTHRITIS
     Dosage: 50 MG, WEEKLY
     Route: 065
     Dates: start: 20120701, end: 20130810
  2. ENBREL [Suspect]
     Dosage: UNK
     Route: 065
     Dates: start: 20131010
  3. DELTISONA B                        /00049601/ [Concomitant]
     Dosage: 8 MG, 1X/DAY
     Route: 048
     Dates: start: 2010
  4. METHOTREXATE [Concomitant]
     Dosage: 15 MG, WEEKLY
     Route: 051
     Dates: start: 2010

REACTIONS (1)
  - Arthropathy [Recovering/Resolving]
